FAERS Safety Report 22339766 (Version 1)
Quarter: 2023Q2

REPORT INFORMATION
  Report Type: Spontaneous
  Country: US (occurrence: None)
  Receive Date: 20230517
  Receipt Date: 20230517
  Transmission Date: 20230722
  Serious: Yes (Other)
  Sender: FDA-Public Use
  Company Number: None

PATIENT
  Age: 23 Year
  Sex: Female

DRUGS (6)
  1. NEXPLANON [Suspect]
     Active Substance: ETONOGESTREL
  2. Lamitcal [Concomitant]
  3. CALCIUM [Concomitant]
     Active Substance: CALCIUM
  4. MAGNESIUM [Concomitant]
     Active Substance: MAGNESIUM
  5. FOLATE SODIUM [Concomitant]
     Active Substance: FOLATE SODIUM
  6. VITAMIN B12 [Concomitant]
     Active Substance: CYANOCOBALAMIN

REACTIONS (9)
  - Hypoaesthesia [None]
  - Electric shock sensation [None]
  - Hypotonia [None]
  - Muscle atrophy [None]
  - Nerve injury [None]
  - Apraxia [None]
  - Depression [None]
  - Anxiety [None]
  - Menstruation irregular [None]

NARRATIVE: CASE EVENT DATE: 20220925
